FAERS Safety Report 9629844 (Version 2)
Quarter: 2013Q4

REPORT INFORMATION
  Report Type: Spontaneous
  Country: IT (occurrence: IT)
  Receive Date: 20131017
  Receipt Date: 20131218
  Transmission Date: 20140711
  Serious: Yes (Hospitalization)
  Sender: FDA-Public Use
  Company Number: IT-BRISTOL-MYERS SQUIBB COMPANY-19507409

PATIENT
  Age: 74 Year
  Sex: Female
  Weight: 54 kg

DRUGS (6)
  1. ORENCIA FOR INJ 250 MG/VIAL [Suspect]
     Indication: RHEUMATOID ARTHRITIS
     Route: 040
     Dates: start: 20121105, end: 20130709
  2. CELEBREX [Suspect]
     Indication: RHEUMATOID ARTHRITIS
     Dosage: CAPS
     Route: 048
  3. LANSOPRAZOLE [Concomitant]
     Indication: PROPHYLAXIS
     Dosage: 1YEAR
     Route: 048
  4. CAPOTEN TABS 50 MG [Concomitant]
     Indication: HYPERTENSION
     Route: 048
     Dates: start: 20120709, end: 20130709
  5. CATAPRESAN [Concomitant]
     Indication: HYPERTENSION
     Dosage: TTS ^5 MG TRASNDERMAL PATCHES
     Route: 062
     Dates: start: 20120709, end: 20130709
  6. MEDROL [Concomitant]
     Indication: RHEUMATOID ARTHRITIS
     Dosage: PRODUCT FORMULATION:MEDROL ^4 MG TABS
     Route: 048
     Dates: start: 20130709, end: 20130709

REACTIONS (1)
  - Myocardial infarction [Recovered/Resolved]
